FAERS Safety Report 4474023-0 (Version None)
Quarter: 2004Q4

REPORT INFORMATION
  Report Type: 
  Country: None (occurrence: None)
  Receive Date: 20041008
  Receipt Date: 20040916
  Transmission Date: 20050328
  Serious: Yes (Other)
  Sender: FDA-Public Use
  Company Number: USA040978499

PATIENT
  Sex: Male
  Weight: 78 kg

DRUGS (4)
  1. HUMALOG [Suspect]
     Indication: DIABETES MELLITUS
     Dates: start: 19970101
  2. HUMULIN N [Suspect]
     Indication: DIABETES MELLITUS
     Dosage: 40 U DAY
     Dates: start: 19970101
  3. SULFASALAZINE [Concomitant]
  4. LANTUS [Concomitant]

REACTIONS (7)
  - BLOOD GLUCOSE DECREASED [None]
  - BLOOD GLUCOSE INCREASED [None]
  - BODY HEIGHT DECREASED [None]
  - COLITIS ULCERATIVE [None]
  - DYSPNOEA [None]
  - GASTRIC DISORDER [None]
  - PULMONARY FUNCTION TEST DECREASED [None]
